FAERS Safety Report 25262128 (Version 2)
Quarter: 2025Q3

REPORT INFORMATION
  Report Type: Spontaneous
  Country: KR (occurrence: KR)
  Receive Date: 20250502
  Receipt Date: 20250802
  Transmission Date: 20251020
  Serious: Yes (Other)
  Sender: ALEXION PHARMACEUTICALS
  Company Number: KR-AstraZeneca-2021000592058

PATIENT
  Sex: Male

DRUGS (5)
  1. BRILINTA [Suspect]
     Active Substance: TICAGRELOR
     Indication: Angina pectoris
     Dosage: 60 MILLIGRAM, QD
     Dates: start: 20181025, end: 20210427
  2. ASPIRIN [Concomitant]
     Active Substance: ASPIRIN
     Indication: Angina pectoris
     Dosage: 100 MILLIGRAM, QD
     Dates: start: 20181025
  3. CARVEDILOL [Concomitant]
     Active Substance: CARVEDILOL
     Indication: Angina pectoris
     Dosage: 3.125 MILLIGRAM, QD
     Dates: start: 20181025
  4. ROSUVASTATIN CALCIUM [Concomitant]
     Active Substance: ROSUVASTATIN CALCIUM
     Indication: Angina pectoris
     Dosage: 10 MILLIGRAM, QD
     Dates: start: 20181025
  5. LOSARTAN POTASSIUM [Concomitant]
     Active Substance: LOSARTAN POTASSIUM
     Indication: Angina pectoris
     Dosage: 50 MILLIGRAM, QD
     Dates: start: 20181028

REACTIONS (1)
  - Thrombocytopenia [Recovered/Resolved with Sequelae]

NARRATIVE: CASE EVENT DATE: 20210427
